FAERS Safety Report 16655584 (Version 1)
Quarter: 2019Q3

REPORT INFORMATION
  Report Type: Spontaneous
  Country: FR (occurrence: FR)
  Receive Date: 20190801
  Receipt Date: 20190801
  Transmission Date: 20191004
  Serious: Yes (Other)
  Sender: FDA-Public Use
  Company Number: FR-TEVA-2019-FR-1086303

PATIENT
  Age: 59 Year
  Sex: Female
  Weight: 54.4 kg

DRUGS (5)
  1. EMEND [Concomitant]
     Active Substance: APREPITANT
  2. CAPECITABINE. [Suspect]
     Active Substance: CAPECITABINE
     Indication: INTESTINAL ADENOCARCINOMA
     Route: 048
     Dates: start: 20190527
  3. FLUOROURACILE ACCORD [Suspect]
     Active Substance: FLUOROURACIL
     Indication: INTESTINAL ADENOCARCINOMA
     Dosage: 3744 MG/TOTAL
     Route: 042
     Dates: start: 20190506, end: 20190506
  4. SOLU-MEDROL [Concomitant]
     Active Substance: METHYLPREDNISOLONE SODIUM SUCCINATE
  5. CISPLATINE MYLAN [Suspect]
     Active Substance: CISPLATIN
     Indication: INTESTINAL ADENOCARCINOMA
     Dosage: 78 MG/TOTAL
     Route: 042
     Dates: start: 20190506, end: 20190506

REACTIONS (1)
  - Deep vein thrombosis [Recovering/Resolving]

NARRATIVE: CASE EVENT DATE: 20190607
